FAERS Safety Report 16850174 (Version 9)
Quarter: 2020Q1

REPORT INFORMATION
  Report Type: Spontaneous
  Country: PT (occurrence: PT)
  Receive Date: 20190925
  Receipt Date: 20200320
  Transmission Date: 20200409
  Serious: Yes (Hospitalization, Other)
  Sender: FDA-Public Use
  Company Number: PHHY2019PT221354

PATIENT
  Age: 18 Year
  Sex: Female

DRUGS (1)
  1. ACETAMINOPHEN (PARACETAMOL) [Suspect]
     Active Substance: ACETAMINOPHEN
     Indication: PAIN
     Dosage: 10 G, IN THE PREVIOUS 24 HOURS
     Route: 048

REACTIONS (19)
  - Overdose [Recovered/Resolved]
  - Acidosis [Recovering/Resolving]
  - Multiple organ dysfunction syndrome [Recovering/Resolving]
  - International normalised ratio increased [Recovered/Resolved]
  - Acute hepatic failure [Recovered/Resolved]
  - Confusional state [Recovered/Resolved]
  - Hyperpipecolic acidaemia [Recovered/Resolved]
  - Pain [Recovering/Resolving]
  - Leukocytosis [Recovered/Resolved]
  - Hyperlactacidaemia [Recovered/Resolved]
  - Abdominal pain [Recovered/Resolved]
  - Toxicity to various agents [Recovered/Resolved]
  - Activated partial thromboplastin time prolonged [Recovered/Resolved]
  - Sinus tachycardia [Recovered/Resolved]
  - Tachypnoea [Recovered/Resolved]
  - Septic shock [Recovering/Resolving]
  - Vomiting [Recovered/Resolved]
  - Abdominal pain upper [Recovered/Resolved]
  - Neutrophilia [Recovered/Resolved]
